FAERS Safety Report 9835537 (Version 2)
Quarter: 2014Q1

REPORT INFORMATION
  Report Type: Spontaneous
  Country: US (occurrence: US)
  Receive Date: 20140122
  Receipt Date: 20140122
  Transmission Date: 20141002
  Serious: Yes (Other)
  Sender: FDA-Public Use
  Company Number: US-BRISTOL-MYERS SQUIBB COMPANY-19729060

PATIENT
  Age: 65 Year
  Sex: Male

DRUGS (2)
  1. ELIQUIS [Suspect]
     Indication: ATRIAL FIBRILLATION
     Dates: start: 20130904, end: 20131023
  2. ELIQUIS [Suspect]
     Indication: CEREBROVASCULAR ACCIDENT
     Dates: start: 20130904, end: 20131023

REACTIONS (1)
  - Gastrointestinal haemorrhage [Recovering/Resolving]
